FAERS Safety Report 8477377-3 (Version None)
Quarter: 2012Q2

REPORT INFORMATION
  Report Type: 
  Country: None (occurrence: None)
  Receive Date: 20120618
  Receipt Date: 20120601
  Transmission Date: 20120825
  Serious: Yes (Other)
  Sender: FDA-Public Use
  Company Number: 2012SA040261

PATIENT
  Sex: Female

DRUGS (1)
  1. MENTHOL [Suspect]

REACTIONS (2)
  - CHEMICAL INJURY [None]
  - SKIN EXFOLIATION [None]
